FAERS Safety Report 18466722 (Version 1)
Quarter: 2020Q4

REPORT INFORMATION
  Report Type: Spontaneous
  Country: US (occurrence: US)
  Receive Date: 20201103
  Receipt Date: 20201103
  Transmission Date: 20210114
  Serious: Yes (Life-Threatening, Hospitalization)
  Sender: FDA-Public Use
  Company Number: None

PATIENT
  Age: 72 Year
  Sex: Male
  Weight: 97.52 kg

DRUGS (7)
  1. MUPIROCIN 2% OINTMENT [Concomitant]
     Active Substance: MUPIROCIN
  2. METOPROL SUCC ER [Concomitant]
  3. ETODOLAC 400 [Suspect]
     Active Substance: ETODOLAC
     Indication: SPINAL PAIN
     Dosage: ?          QUANTITY:2 DF DOSAGE FORM;?
     Route: 048
     Dates: end: 20200730
  4. BRILINTA [Concomitant]
     Active Substance: TICAGRELOR
  5. ATORVASTATIN [Concomitant]
     Active Substance: ATORVASTATIN
  6. KETOCONAZOLE 2% CREAM [Concomitant]
     Active Substance: KETOCONAZOLE
  7. ASPIRIN EC [Concomitant]
     Active Substance: ASPIRIN

REACTIONS (4)
  - Back pain [None]
  - Neck pain [None]
  - Road traffic accident [None]
  - Acute myocardial infarction [None]

NARRATIVE: CASE EVENT DATE: 20200722
